FAERS Safety Report 7999497-X (Version None)
Quarter: 2011Q4

REPORT INFORMATION
  Report Type: 
  Country: None (occurrence: None)
  Receive Date: 20111221
  Receipt Date: 20111215
  Transmission Date: 20120403
  Serious: No
  Sender: FDA-Public Use
  Company Number: US-PFIZER INC-2011305578

PATIENT
  Sex: Female

DRUGS (12)
  1. PROCHLORPERAZINE [Concomitant]
     Dosage: 10 MG, UNK
  2. MAGNESIUM [Concomitant]
     Dosage: 500 MG, UNK
  3. LOMOTIL [Concomitant]
     Dosage: 2.5 MG, UNK
  4. PRILOSEC [Concomitant]
     Dosage: 20 MG, UNK
  5. SUTENT [Suspect]
     Dosage: 50 MG, 1 CAPSULE EVERY DAY FOR 4 WEEKS, THEN OFF FOR 2 WEEKS
     Route: 048
     Dates: start: 20111022
  6. ATENOLOL [Concomitant]
     Dosage: 25 MG, UNK
  7. FENTANYL [Concomitant]
     Dosage: UNK, 25MCG/HR
  8. ISOSORBIDE DINITRATE [Concomitant]
     Dosage: 10 MG, UNK
  9. ZOLOFT [Concomitant]
     Dosage: 100 MG, UNK
  10. ZOFRAN [Concomitant]
     Dosage: 8 MG, UNK
  11. HYDROCODONE [Concomitant]
     Dosage: UNK
  12. POTASSIUM [Concomitant]
     Dosage: 25 MEQ, UNK

REACTIONS (2)
  - ERYTHEMA [None]
  - NAUSEA [None]
